FAERS Safety Report 4942692-4 (Version None)
Quarter: 2006Q1

REPORT INFORMATION
  Report Type: 
  Country: None (occurrence: None)
  Receive Date: 20060309
  Receipt Date: 20060222
  Transmission Date: 20060701
  Serious: Yes (Hospitalization, Other)
  Sender: FDA-Public Use
  Company Number: GXKR2006AU01118

PATIENT
  Age: 30 Year
  Sex: Female

DRUGS (2)
  1. METFORMIN [Suspect]
     Indication: OVULATION INDUCTION
     Dosage: 500 MG, TID
  2. CLOMIPHENE CITRATE [Concomitant]

REACTIONS (5)
  - ABORTION MISSED [None]
  - CAESAREAN SECTION [None]
  - DRUG EXPOSURE DURING PREGNANCY [None]
  - MULTIPLE PREGNANCY [None]
  - PRE-ECLAMPSIA [None]
